FAERS Safety Report 9099649 (Version 3)
Quarter: 2014Q1

REPORT INFORMATION
  Report Type: Spontaneous
  Country: GB (occurrence: GB)
  Receive Date: 20130214
  Receipt Date: 20140206
  Transmission Date: 20141002
  Serious: Yes (Other)
  Sender: FDA-Public Use
  Company Number: GB-BAYER-2013-018570

PATIENT
  Age: 40 Year
  Sex: Male
  Weight: 73 kg

DRUGS (4)
  1. CIPROXIN 500 MG FILM-COATED TABLETS [Suspect]
     Indication: INFECTION PROPHYLAXIS
     Dosage: 500 MG, BID
     Route: 048
     Dates: start: 20130110, end: 20130115
  2. IBUPROFEN [Concomitant]
     Dosage: 6 DF, QD
     Dates: start: 20130117, end: 20130117
  3. IBUPROFEN [Concomitant]
     Dosage: 2 DF, QD
     Dates: start: 20130119, end: 20130119
  4. PARACETAMOL [Concomitant]

REACTIONS (13)
  - Tendon pain [Recovered/Resolved]
  - Dizziness [Recovered/Resolved]
  - Malaise [Unknown]
  - Headache [Recovered/Resolved]
  - Pain in jaw [Recovered/Resolved]
  - Joint crepitation [Not Recovered/Not Resolved]
  - Arthralgia [Recovering/Resolving]
  - Joint stiffness [Recovering/Resolving]
  - Tinnitus [Not Recovered/Not Resolved]
  - Activities of daily living impaired [Recovering/Resolving]
  - Pain in extremity [Not Recovered/Not Resolved]
  - Musculoskeletal pain [Not Recovered/Not Resolved]
  - Tendonitis [Not Recovered/Not Resolved]
